FAERS Safety Report 5089540-2 (Version None)
Quarter: 2006Q3

REPORT INFORMATION
  Report Type: 
  Country: None (occurrence: None)
  Receive Date: 20060727
  Receipt Date: 20060605
  Transmission Date: 20061208
  Serious: Yes (Other)
  Sender: FDA-Public Use
  Company Number: 2006072824

PATIENT
  Sex: Female

DRUGS (1)
  1. LYRICA [Suspect]
     Indication: ILL-DEFINED DISORDER
     Dosage: UNKNOWN (75 MG, UNKNOWN), UNKNOWN
     Dates: start: 20060101

REACTIONS (2)
  - DISTURBANCE IN ATTENTION [None]
  - FEELING ABNORMAL [None]
